FAERS Safety Report 6124445-7 (Version None)
Quarter: 2009Q1

REPORT INFORMATION
  Report Type: 
  Country: None (occurrence: None)
  Receive Date: 20090317
  Receipt Date: 20090317
  Transmission Date: 20090719
  Serious: Yes (Other)
  Sender: FDA-Public Use
  Company Number: None

PATIENT
  Age: 39 Year
  Sex: Female
  Weight: 67.1324 kg

DRUGS (5)
  1. NEURONTIN [Suspect]
     Indication: BLINDNESS
     Dosage: 300MG. X 3 A DAY DAILY OTHER 8 TO 10 DAYS
     Dates: start: 20030304, end: 20030312
  2. NEURONTIN [Suspect]
     Indication: HEADACHE
     Dosage: 300MG. X 3 A DAY DAILY OTHER 8 TO 10 DAYS
     Dates: start: 20030304, end: 20030312
  3. NEURONTIN [Suspect]
     Indication: PAIN IN EXTREMITY
     Dosage: 300MG. X 3 A DAY DAILY OTHER 8 TO 10 DAYS
     Dates: start: 20030304, end: 20030312
  4. NEURONTIN [Suspect]
     Indication: VISION BLURRED
     Dosage: 300MG. X 3 A DAY DAILY OTHER 8 TO 10 DAYS
     Dates: start: 20030304, end: 20030312
  5. NEURONTIN [Concomitant]

REACTIONS (7)
  - ABNORMAL BEHAVIOUR [None]
  - BLINDNESS [None]
  - DRUG INEFFECTIVE [None]
  - HEADACHE [None]
  - NAUSEA [None]
  - PAIN IN EXTREMITY [None]
  - VISION BLURRED [None]
